FAERS Safety Report 20635268 (Version 1)
Quarter: 2022Q1

REPORT INFORMATION
  Report Type: Spontaneous
  Country: PT (occurrence: PT)
  Receive Date: 20220325
  Receipt Date: 20220325
  Transmission Date: 20220423
  Serious: Yes (Other)
  Sender: FDA-Public Use
  Company Number: None

PATIENT
  Age: 72 Year
  Sex: Male
  Weight: 80 kg

DRUGS (3)
  1. VELCADE [Suspect]
     Active Substance: BORTEZOMIB
     Indication: Plasma cell myeloma
     Dosage: UNK
     Route: 058
     Dates: start: 20210321
  2. MELPHALAN [Concomitant]
     Active Substance: MELPHALAN
     Dosage: UNK
     Route: 065
  3. DEXAMETHASONE [Concomitant]
     Active Substance: DEXAMETHASONE
     Dosage: UNK
     Route: 065

REACTIONS (6)
  - Localised oedema [Unknown]
  - Injection site oedema [Unknown]
  - Skin reaction [Unknown]
  - Injection site erythema [Unknown]
  - Neuropathy peripheral [Unknown]
  - Rash [Unknown]

NARRATIVE: CASE EVENT DATE: 20210401
